FAERS Safety Report 20197557 (Version 1)
Quarter: 2021Q4

REPORT INFORMATION
  Report Type: Spontaneous
  Country: US (occurrence: US)
  Receive Date: 20211217
  Receipt Date: 20211217
  Transmission Date: 20220303
  Serious: No
  Sender: FDA-Public Use
  Company Number: US-ORG100016242-2021000529

PATIENT
  Age: 60 Year
  Sex: Male

DRUGS (2)
  1. EXPAREL [Suspect]
     Active Substance: BUPIVACAINE
     Dosage: 10ML EXPAREL AND 10ML OF BUPIVACAINE HCL
     Route: 065
     Dates: start: 20210916, end: 20210916
  2. BUPIVACAINE HYDROCHLORIDE [Suspect]
     Active Substance: BUPIVACAINE HYDROCHLORIDE
     Dosage: 10ML EXPAREL AND 10ML OF BUPIVACAINE HCL
     Route: 065
     Dates: start: 20210916, end: 20210916

REACTIONS (1)
  - Motor dysfunction [Unknown]

NARRATIVE: CASE EVENT DATE: 20210917
